FAERS Safety Report 13321685 (Version 1)
Quarter: 2017Q1

REPORT INFORMATION
  Report Type: Report from Study
  Country: US (occurrence: US)
  Receive Date: 20170309
  Receipt Date: 20170309
  Transmission Date: 20170428
  Serious: Yes (Other)
  Sender: FDA-Public Use
  Company Number: US-ROCHE-1902353

PATIENT

DRUGS (4)
  1. TELAPREVIR [Suspect]
     Active Substance: TELAPREVIR
     Indication: HEPATITIS C
     Route: 065
  2. RIBAVIRIN. [Suspect]
     Active Substance: RIBAVIRIN
     Indication: HEPATITIS C
     Route: 065
  3. PEG-INTERFERON ALFA 2A [Suspect]
     Active Substance: PEGINTERFERON ALFA-2A
     Indication: HEPATITIS C
     Route: 065
  4. BOCEPREVIR [Suspect]
     Active Substance: BOCEPREVIR
     Indication: HEPATITIS C
     Route: 065

REACTIONS (16)
  - Atrial fibrillation [Unknown]
  - Anxiety [Recovered/Resolved]
  - Hyperthyroidism [Unknown]
  - Vision blurred [Recovered/Resolved]
  - Influenza like illness [Recovered/Resolved]
  - Rash [Unknown]
  - Retinal exudates [Unknown]
  - Depression [Recovered/Resolved]
  - Anaemia [Unknown]
  - Vomiting [Recovered/Resolved]
  - Neutropenia [Unknown]
  - Pain [Recovered/Resolved]
  - Fatigue [Recovered/Resolved]
  - Treatment failure [Unknown]
  - Nausea [Recovered/Resolved]
  - Blood creatinine increased [Recovered/Resolved]
